FAERS Safety Report 7546520-2 (Version None)
Quarter: 2011Q2

REPORT INFORMATION
  Report Type: 
  Country: None (occurrence: None)
  Receive Date: 20110524
  Receipt Date: 20110221
  Transmission Date: 20111010
  Serious: No
  Sender: FDA-Public Use
  Company Number: 027953

PATIENT
  Sex: Female
  Weight: 42.2 kg

DRUGS (9)
  1. METHOTREXATE [Concomitant]
  2. METRONIDAZOLE [Concomitant]
  3. PANTOPRAZOLE [Concomitant]
  4. VITAMIN D [Concomitant]
  5. CIMZIA [Suspect]
     Indication: CROHN'S DISEASE
     Dosage: (2 SHOTS SUBCUTANEOUS)
     Route: 058
     Dates: start: 20100101
  6. VITAMIN B12 /00056201/ [Concomitant]
  7. FOLIC ACID [Concomitant]
  8. EVISTA /01303201/ [Concomitant]
  9. LITHIUM CARBONATE [Concomitant]

REACTIONS (6)
  - DIARRHOEA [None]
  - FLATULENCE [None]
  - FREQUENT BOWEL MOVEMENTS [None]
  - ANAEMIA [None]
  - ABDOMINAL PAIN [None]
  - FATIGUE [None]
